FAERS Safety Report 10944471 (Version 2)
Quarter: 2015Q1

REPORT INFORMATION
  Report Type: Spontaneous
  Country: JP (occurrence: None)
  Receive Date: 20150318
  Receipt Date: 20150331
  Transmission Date: 20150721
  Serious: Yes (Other)
  Sender: FDA-Public Use
  Company Number: SP09189

PATIENT
  Age: 73 Year
  Sex: Female

DRUGS (3)
  1. LAXOBERON [Concomitant]
     Active Substance: SODIUM PICOSULFATE
  2. MOVIPREP [Suspect]
     Active Substance: ASCORBIC ACID\POLYETHYLENE GLYCOL 3350\POTASSIUM CHLORIDE\SODIUM ASCORBATE\SODIUM CHLORIDE\SODIUM SULFATE
     Indication: BOWEL PREPARATION
     Route: 048
     Dates: start: 20150307, end: 20150307
  3. GASCON [Concomitant]
     Active Substance: DIMETHICONE

REACTIONS (3)
  - Vomiting [None]
  - Loss of consciousness [None]
  - Respiratory arrest [None]

NARRATIVE: CASE EVENT DATE: 20150307
